FAERS Safety Report 11151474 (Version 1)
Quarter: 2015Q2

REPORT INFORMATION
  Report Type: Spontaneous
  Country: US (occurrence: US)
  Receive Date: 20150601
  Receipt Date: 20150601
  Transmission Date: 20150821
  Serious: No
  Sender: FDA-Public Use
  Company Number: US-BIOGENIDEC-2015BI073194

PATIENT
  Sex: Female

DRUGS (1)
  1. AVONEX [Suspect]
     Active Substance: INTERFERON BETA-1A
     Indication: MULTIPLE SCLEROSIS
     Route: 030

REACTIONS (6)
  - Vertigo [Unknown]
  - Drug dose omission [Unknown]
  - Nausea [Unknown]
  - Cold sweat [Unknown]
  - Rash [Unknown]
  - Feeling hot [Unknown]

NARRATIVE: CASE EVENT DATE: 201504
